FAERS Safety Report 9242938 (Version 1)
Quarter: 2013Q2

REPORT INFORMATION
  Report Type: Report from Study
  Country: DE (occurrence: DE)
  Receive Date: 20130419
  Receipt Date: 20130419
  Transmission Date: 20140414
  Serious: Yes (Other)
  Sender: FDA-Public Use
  Company Number: DE-ABBOTT-13P-062-1076853-00

PATIENT
  Age: 67 Year
  Sex: Male
  Weight: 88 kg

DRUGS (3)
  1. HUMIRA [Suspect]
     Indication: RHEUMATOID ARTHRITIS
     Route: 058
     Dates: start: 20120731
  2. GLUCOCORTICOIDS [Concomitant]
     Indication: PRODUCT USED FOR UNKNOWN INDICATION
     Dates: start: 20130108
  3. FUMADERM [Concomitant]
     Indication: PSORIASIS

REACTIONS (2)
  - Diabetes mellitus [Not Recovered/Not Resolved]
  - Thrombophlebitis [Recovered/Resolved]
